FAERS Safety Report 7526234-5 (Version None)
Quarter: 2011Q2

REPORT INFORMATION
  Report Type: 
  Country: None (occurrence: None)
  Receive Date: 20110527
  Receipt Date: 20110513
  Transmission Date: 20111010
  Serious: Yes (Hospitalization)
  Sender: FDA-Public Use
  Company Number: AUR-APL-2011-01735

PATIENT
  Age: 60 Year
  Sex: Male

DRUGS (10)
  1. ASPIRIN [Suspect]
     Indication: CARDIOVASCULAR EVENT PROPHYLAXIS
  2. ATORVASTATIN [Suspect]
  3. BUDESONIDE [Suspect]
  4. AZITHROMYCIN [Suspect]
     Indication: UPPER RESPIRATORY TRACT INFECTION
  5. TESTOSTERONE [Suspect]
     Dosage: TRANSDERMAL
     Route: 062
  6. OMEPRAZOLE [Suspect]
  7. VENLAFAXINE [Suspect]
  8. PREDNISOLONE TAB [Suspect]
  9. DIAZEPAM [Suspect]
  10. ST. JOHN'S WORT [Suspect]

REACTIONS (13)
  - FATIGUE [None]
  - SYNCOPE [None]
  - ALCOHOL USE [None]
  - TUBULOINTERSTITIAL NEPHRITIS [None]
  - UPPER RESPIRATORY TRACT INFECTION [None]
  - ORTHOSTATIC HYPOTENSION [None]
  - GASTRIC ULCER [None]
  - TACHYCARDIA [None]
  - MELAENA [None]
  - ANXIETY [None]
  - DIABETES MELLITUS [None]
  - DISEASE PROGRESSION [None]
  - GASTRITIS EROSIVE [None]
